FAERS Safety Report 7875301-5 (Version None)
Quarter: 2011Q4

REPORT INFORMATION
  Report Type: 
  Country: None (occurrence: None)
  Receive Date: 20111031
  Receipt Date: 20111017
  Transmission Date: 20120403
  Serious: Yes (Hospitalization, Other)
  Sender: FDA-Public Use
  Company Number: PHHY2011CA77003

PATIENT
  Sex: Female

DRUGS (7)
  1. SANDOSTATIN LAR [Suspect]
     Indication: POST GASTRIC SURGERY SYNDROME
     Dosage: 20 MG, QMO
     Route: 030
     Dates: start: 20110816
  2. PLAVIX [Concomitant]
  3. METOPROLOL [Concomitant]
  4. ASPIRIN [Concomitant]
  5. PANTOPRAZOLE [Concomitant]
     Dosage: 40 MG, BID
  6. SANDOSTATIN [Suspect]
     Indication: POST GASTRIC SURGERY SYNDROME
     Route: 058
     Dates: start: 20060101
  7. SANDOSTATIN LAR [Suspect]
     Dosage: UNK
     Dates: start: 20110911

REACTIONS (5)
  - CIRCULATORY COLLAPSE [None]
  - SYNCOPE [None]
  - MALAISE [None]
  - RENAL DISORDER [None]
  - DYSPNOEA [None]
